FAERS Safety Report 18274908 (Version 1)
Quarter: 2020Q3

REPORT INFORMATION
  Report Type: Spontaneous
  Country: DE (occurrence: DE)
  Receive Date: 20200916
  Receipt Date: 20200916
  Transmission Date: 20201103
  Serious: Yes (Other)
  Sender: FDA-Public Use
  Company Number: DE-PFIZER INC-2020354426

PATIENT
  Age: 57 Year
  Sex: Male

DRUGS (7)
  1. HUMALOG [Interacting]
     Active Substance: INSULIN LISPRO
     Dosage: 18 IU, AS NEEDED
     Route: 058
     Dates: start: 2019
  2. ABASAGLAR [Interacting]
     Active Substance: INSULIN GLARGINE
     Dosage: 42 IU, 1X/DAY, NIGHT
     Route: 058
     Dates: start: 2019
  3. ATORVASTATIN CALCIUM. [Suspect]
     Active Substance: ATORVASTATIN CALCIUM
     Dosage: 1 DF, 1X/DAY (EACH EVENING)
     Route: 065
  4. JANUMET [Interacting]
     Active Substance: METFORMIN HYDROCHLORIDE\SITAGLIPTIN PHOSPHATE
     Dosage: 1 DF, 2X/DAY
  5. GLIMEPIRIDE. [Interacting]
     Active Substance: GLIMEPIRIDE
     Dosage: 1 DF, 1X/DAY, NOON
  6. PREGABABLIN [Interacting]
     Active Substance: PREGABALIN
     Dosage: 1.5 MG, 2X/DAY
  7. ALPHA LIPON ARISTO [Interacting]
     Active Substance: THIOCTIC ACID
     Dosage: 1 DF, 1X/DAY, EACH MORNING

REACTIONS (3)
  - Glycosylated haemoglobin increased [Unknown]
  - Drug interaction [Unknown]
  - Blood glucose increased [Not Recovered/Not Resolved]

NARRATIVE: CASE EVENT DATE: 20200729
